FAERS Safety Report 6751393-1 (Version None)
Quarter: 2010Q2

REPORT INFORMATION
  Report Type: 
  Country: None (occurrence: None)
  Receive Date: 20100525
  Receipt Date: 20100519
  Transmission Date: 20101027
  Serious: Yes (Other)
  Sender: FDA-Public Use
  Company Number: FR-1181992

PATIENT
  Age: 59 Year
  Sex: Male

DRUGS (1)
  1. AZOPT            (BRINZOLAMIDE) 1 % OPHTHALMIC SUSPENSION [Suspect]
     Dosage: OPHTHALMIC
     Route: 047

REACTIONS (7)
  - ALOPECIA [None]
  - AMNESIA [None]
  - ARTHRALGIA [None]
  - FATIGUE [None]
  - SLEEP DISORDER [None]
  - VERTIGO [None]
  - VISUAL IMPAIRMENT [None]
